FAERS Safety Report 5153416-2 (Version None)
Quarter: 2006Q4

REPORT INFORMATION
  Report Type: 
  Country: None (occurrence: None)
  Receive Date: 20061114
  Receipt Date: 20061110
  Transmission Date: 20070319
  Serious: Yes (Life-Threatening, Hospitalization, Other)
  Sender: FDA-Public Use
  Company Number: 2006S1000183

PATIENT
  Age: 1 Day
  Sex: Male

DRUGS (16)
  1. NITRIC OXIDE [Suspect]
     Indication: LUNG DISORDER
     Dosage: 5 PPM; CONT
     Route: 055
     Dates: start: 20060910, end: 20061001
  2. NITRIC OXIDE [Suspect]
     Indication: PROPHYLAXIS
     Dosage: 5 PPM; CONT
     Route: 055
     Dates: start: 20060910, end: 20061001
  3. AMPICILLIN SODIUM [Concomitant]
  4. AMIKACIN [Concomitant]
  5. SURVANTA [Concomitant]
  6. DOPAMINE HCL IN 5% DEXTROSE [Concomitant]
  7. FENTANYL [Concomitant]
  8. SODIUM BICARBONATE [Concomitant]
  9. SANDOGLOBULIN [Concomitant]
  10. DOPAMINE HCL IN 5% DEXTROSE [Concomitant]
  11. FENTANYL [Concomitant]
  12. METRONIDAZOLE [Concomitant]
  13. IBUPROFEN [Concomitant]
  14. CEFOTAXIME [Concomitant]
  15. VANCOMYCIN [Concomitant]
  16. CEFAZOLIN [Concomitant]

REACTIONS (12)
  - BETA HAEMOLYTIC STREPTOCOCCAL INFECTION [None]
  - GENERAL PHYSICAL HEALTH DETERIORATION [None]
  - METABOLIC ACIDOSIS [None]
  - NECROTISING ENTEROCOLITIS NEONATAL [None]
  - NEONATAL DISORDER [None]
  - NEONATAL HYPOTENSION [None]
  - PALLOR [None]
  - PATENT DUCTUS ARTERIOSUS [None]
  - PNEUMOTHORAX [None]
  - PULMONARY HYPERTENSION [None]
  - RESPIRATORY ACIDOSIS [None]
  - SEPSIS NEONATAL [None]
